FAERS Safety Report 16544154 (Version 5)
Quarter: 2019Q3

REPORT INFORMATION
  Report Type: Spontaneous
  Country: US (occurrence: US)
  Receive Date: 20190709
  Receipt Date: 20190917
  Transmission Date: 20191004
  Serious: No
  Sender: FDA-Public Use
  Company Number: US-PFIZER INC-2019290089

PATIENT
  Age: 73 Year
  Sex: Female
  Weight: 66 kg

DRUGS (1)
  1. LYRICA [Suspect]
     Active Substance: PREGABALIN
     Indication: POST HERPETIC NEURALGIA
     Dosage: 50 MG, 1X/DAY, [50 MG ONE AT NIGHT]
     Route: 048

REACTIONS (9)
  - Nasopharyngitis [Not Recovered/Not Resolved]
  - Spinal stenosis [Unknown]
  - Visual impairment [Unknown]
  - Condition aggravated [Unknown]
  - Seasonal allergy [Not Recovered/Not Resolved]
  - Drug ineffective [Recovered/Resolved]
  - Weight decreased [Unknown]
  - Pain [Unknown]
  - Back injury [Unknown]
